FAERS Safety Report 7491426-0 (Version None)
Quarter: 2011Q2

REPORT INFORMATION
  Report Type: 
  Country: None (occurrence: None)
  Receive Date: 20110519
  Receipt Date: 20110509
  Transmission Date: 20111010
  Serious: Yes (Other)
  Sender: FDA-Public Use
  Company Number: PHHY2011US28586

PATIENT
  Sex: Female
  Weight: 91.156 kg

DRUGS (3)
  1. TASIGNA [Suspect]
     Indication: CHRONIC MYELOID LEUKAEMIA
     Dosage: 400 MG, BID
     Route: 048
     Dates: start: 20110401, end: 20110406
  2. ALLIGOA [Concomitant]
     Indication: HYPERSENSITIVITY
     Dosage: 40 MG, QD
  3. ESTRIOL [Concomitant]
     Indication: HORMONE REPLACEMENT THERAPY

REACTIONS (6)
  - BACK PAIN [None]
  - VOMITING [None]
  - ABDOMINAL PAIN [None]
  - BLOOD AMYLASE INCREASED [None]
  - PANCREATITIS ACUTE [None]
  - LIPASE INCREASED [None]
